FAERS Safety Report 9788604 (Version 6)
Quarter: 2014Q2

REPORT INFORMATION
  Report Type: Report from Study
  Country: US (occurrence: US)
  Receive Date: 20131230
  Receipt Date: 20140520
  Transmission Date: 20141212
  Serious: Yes (Life-Threatening, Hospitalization, Disabling, Other)
  Sender: FDA-Public Use
  Company Number: US-ACTELION-A-US2013-92852

PATIENT
  Age: 73 Year
  Sex: Male

DRUGS (13)
  1. TRACLEER [Suspect]
     Indication: PULMONARY ARTERIAL HYPERTENSION
     Dosage: 125 MG, UNK
     Route: 048
     Dates: start: 20130903
  2. TRACLEER [Suspect]
     Dosage: 62.5 MG, UNK
     Route: 048
     Dates: start: 20130420, end: 20130903
  3. NORVASC [Concomitant]
  4. AVASTIN [Concomitant]
  5. COREG [Concomitant]
  6. VITAMIN D [Concomitant]
  7. LASIX [Concomitant]
  8. MULTIVITAMIN [Concomitant]
  9. NIASPAN [Concomitant]
  10. NITROSTAT [Concomitant]
  11. K-DUR [Concomitant]
  12. ALDACTONE [Concomitant]
  13. ARMOUR THYROID [Concomitant]

REACTIONS (7)
  - Viral infection [Unknown]
  - White blood cell count increased [Not Recovered/Not Resolved]
  - Platelet count decreased [Not Recovered/Not Resolved]
  - Plasma cell myeloma [Unknown]
  - Contusion [Unknown]
  - Epistaxis [Unknown]
  - Platelet transfusion [Not Recovered/Not Resolved]
